FAERS Safety Report 6298789-2 (Version None)
Quarter: 2009Q3

REPORT INFORMATION
  Report Type: 
  Country: None (occurrence: None)
  Receive Date: 20090805
  Receipt Date: 20090805
  Transmission Date: 20100115
  Serious: Yes (Other)
  Sender: FDA-Public Use
  Company Number: None

PATIENT
  Sex: Male
  Weight: 79.3795 kg

DRUGS (1)
  1. CELEBREX [Suspect]
     Indication: ARTHRALGIA
     Dosage: 1 CAPSULE DAILY
     Dates: start: 20070101, end: 20090510

REACTIONS (6)
  - CARDIAC PACEMAKER INSERTION [None]
  - CHOKING [None]
  - DYSPNOEA [None]
  - ERYTHEMA [None]
  - PRODUCTIVE COUGH [None]
  - THROAT TIGHTNESS [None]
